FAERS Safety Report 7811796-0 (Version None)
Quarter: 2011Q4

REPORT INFORMATION
  Report Type: 
  Country: None (occurrence: None)
  Receive Date: 20111013
  Receipt Date: 20111004
  Transmission Date: 20120403
  Serious: Yes (Hospitalization)
  Sender: FDA-Public Use
  Company Number: US-BAXTER-2011BH029953

PATIENT
  Sex: Male

DRUGS (2)
  1. DIANEAL [Suspect]
     Indication: PERITONEAL DIALYSIS
     Route: 033
     Dates: start: 20110801, end: 20110921
  2. DIANEAL [Suspect]
     Route: 010
     Dates: start: 20110921

REACTIONS (3)
  - SEPSIS [None]
  - PROCEDURAL COMPLICATION [None]
  - INFECTIOUS PERITONITIS [None]
